FAERS Safety Report 13385328 (Version 3)
Quarter: 2018Q3

REPORT INFORMATION
  Report Type: Spontaneous
  Country: CA (occurrence: CA)
  Receive Date: 20170329
  Receipt Date: 20180925
  Transmission Date: 20181010
  Serious: Yes (Other)
  Sender: FDA-Public Use
  Company Number: CA-ROCHE-1911854

PATIENT
  Age: 61 Year
  Sex: Male

DRUGS (2)
  1. XOLAIR [Suspect]
     Active Substance: OMALIZUMAB
     Indication: ASTHMA
     Route: 058
     Dates: start: 20050617
  2. XOLAIR [Suspect]
     Active Substance: OMALIZUMAB
     Route: 058
     Dates: start: 20160310

REACTIONS (10)
  - Peak expiratory flow rate decreased [Unknown]
  - Loss of consciousness [Unknown]
  - Obstructive airways disorder [Unknown]
  - Forced vital capacity decreased [Unknown]
  - Nasopharyngitis [Unknown]
  - Forced expiratory volume decreased [Not Recovered/Not Resolved]
  - Atelectasis [Unknown]
  - Functional residual capacity increased [Unknown]
  - Pulmonary fibrosis [Unknown]
  - Bronchitis [Unknown]

NARRATIVE: CASE EVENT DATE: 20140109
